FAERS Safety Report 24955867 (Version 1)
Quarter: 2025Q1

REPORT INFORMATION
  Report Type: Spontaneous
  Country: US (occurrence: US)
  Receive Date: 20250211
  Receipt Date: 20250211
  Transmission Date: 20250409
  Serious: Yes (Death)
  Sender: ENDO
  Company Number: US-ENDO USA, INC.-2025-000484

PATIENT
  Age: 38 Year
  Sex: Female

DRUGS (5)
  1. KETALAR [Suspect]
     Active Substance: KETAMINE HYDROCHLORIDE
     Indication: Product used for unknown indication
     Route: 065
  2. UNSPECIFIED INGREDIENT [Suspect]
     Active Substance: UNSPECIFIED INGREDIENT
     Indication: Product used for unknown indication
     Route: 065
  3. FENTANYL [Suspect]
     Active Substance: FENTANYL
     Indication: Product used for unknown indication
     Route: 065
  4. COCAINE [Suspect]
     Active Substance: COCAINE
     Indication: Product used for unknown indication
     Route: 065
  5. XYLAZINE [Suspect]
     Active Substance: XYLAZINE
     Indication: Product used for unknown indication
     Route: 065

REACTIONS (1)
  - Drug abuse [Fatal]

NARRATIVE: CASE EVENT DATE: 20230101
